FAERS Safety Report 7339938-4 (Version None)
Quarter: 2011Q1

REPORT INFORMATION
  Report Type: 
  Country: None (occurrence: None)
  Receive Date: 20110228
  Receipt Date: 20110210
  Transmission Date: 20110831
  Serious: Yes (Hospitalization)
  Sender: FDA-Public Use
  Company Number: 2010-0127

PATIENT
  Age: 77 Year
  Sex: Female

DRUGS (5)
  1. NACOM RETARD 200 (SINEMET) [Concomitant]
  2. BACLOFEN 10 (BACLOFEN) [Concomitant]
  3. ELONTRIL 150 (BUPROPION) [Concomitant]
  4. APO-GO AMPOULES (APO-GO) (APOMORPHINE HYDROCHLORIDE) (APOMORPHINE HYDR [Suspect]
     Indication: PARKINSON'S DISEASE
     Dosage: CONTINUOUS FROM 6 AM TO 10 PM, SUBCUTANEOUS
     Route: 058
     Dates: start: 20080214
  5. MADOPAR LT (LEVODOPA W/ BENSERAZIDE/) [Concomitant]

REACTIONS (1)
  - MUSCLE SPASMS [None]
